FAERS Safety Report 13423724 (Version 1)
Quarter: 2017Q2

REPORT INFORMATION
  Report Type: Spontaneous
  Country: AR (occurrence: AR)
  Receive Date: 20170410
  Receipt Date: 20170410
  Transmission Date: 20170830
  Serious: Yes (Death, Hospitalization)
  Sender: FDA-Public Use
  Company Number: AR-PFIZER INC-2017151130

PATIENT
  Age: 73 Year
  Sex: Male

DRUGS (1)
  1. AXITINIB [Suspect]
     Active Substance: AXITINIB
     Dosage: 5 MG, 2X/DAY (EVERY 12 HOURS)

REACTIONS (9)
  - Death [Fatal]
  - Lymphadenopathy [Unknown]
  - Depressed mood [Unknown]
  - Sensory disturbance [Unknown]
  - Nervous system disorder [Unknown]
  - General physical health deterioration [Unknown]
  - Decreased appetite [Unknown]
  - Fracture [Unknown]
  - Fall [Unknown]

NARRATIVE: CASE EVENT DATE: 20140815
